FAERS Safety Report 7403711-9 (Version None)
Quarter: 2011Q2

REPORT INFORMATION
  Report Type: 
  Country: None (occurrence: None)
  Receive Date: 20110408
  Receipt Date: 20110404
  Transmission Date: 20111010
  Serious: Yes (Other)
  Sender: FDA-Public Use
  Company Number: DE-BRISTOL-MYERS SQUIBB COMPANY-15660111

PATIENT
  Sex: Female
  Weight: 4 kg

DRUGS (2)
  1. SEROQUEL [Suspect]
     Route: 064
  2. ABILIFY [Suspect]
     Route: 064

REACTIONS (1)
  - FOETAL HEART RATE DECREASED [None]
